FAERS Safety Report 18417508 (Version 1)
Quarter: 2020Q4

REPORT INFORMATION
  Report Type: Spontaneous
  Country: US (occurrence: US)
  Receive Date: 20201022
  Receipt Date: 20201022
  Transmission Date: 20210114
  Serious: No
  Sender: FDA-Public Use
  Company Number: US-SEATTLE GENETICS-2020SGN03590

PATIENT
  Sex: Female

DRUGS (2)
  1. TUKYSA [Suspect]
     Active Substance: TUCATINIB
     Indication: BREAST CANCER FEMALE
  2. TUKYSA [Suspect]
     Active Substance: TUCATINIB
     Indication: METASTASES TO LUNG

REACTIONS (5)
  - Brain oedema [Unknown]
  - Off label use [Unknown]
  - Constipation [Unknown]
  - Hypoaesthesia [Unknown]
  - Diarrhoea [Unknown]
